FAERS Safety Report 5856461-4 (Version None)
Quarter: 2008Q3

REPORT INFORMATION
  Report Type: 
  Country: None (occurrence: None)
  Receive Date: 20080825
  Receipt Date: 20080519
  Transmission Date: 20090109
  Serious: No
  Sender: FDA-Public Use
  Company Number: A0727305A

PATIENT
  Age: 89 Year
  Sex: Female

DRUGS (1)
  1. VERAMYST [Suspect]
     Indication: EMPHYSEMA
     Dosage: 27.5MCG UNKNOWN
     Route: 065
     Dates: start: 20080412

REACTIONS (3)
  - DRUG INEFFECTIVE [None]
  - DYSPNOEA [None]
  - SENSATION OF FOREIGN BODY [None]
